FAERS Safety Report 12517722 (Version 3)
Quarter: 2016Q3

REPORT INFORMATION
  Report Type: Spontaneous
  Country: PL (occurrence: PL)
  Receive Date: 20160630
  Receipt Date: 20160923
  Transmission Date: 20161109
  Serious: Yes (Hospitalization, Other)
  Sender: FDA-Public Use
  Company Number: PL-SYMPLMED PHARMACEUTICALS-2016SYMPLMED000250

PATIENT

DRUGS (6)
  1. PRESTARIUM [Suspect]
     Active Substance: PERINDOPRIL
     Indication: HYPERTENSION
     Dosage: 5 MG, QD
     Route: 048
     Dates: start: 201603, end: 20160616
  2. PRESTARIUM [Suspect]
     Active Substance: PERINDOPRIL
     Dosage: 5 MG, QD
     Route: 048
     Dates: start: 20160620, end: 20160621
  3. NEDAL [Concomitant]
     Indication: HYPERTENSION
     Dosage: UNK
     Dates: start: 201603, end: 201607
  4. NEDAL [Concomitant]
     Indication: ATRIAL FIBRILLATION
  5. DIUVER [Concomitant]
     Active Substance: TORSEMIDE
     Indication: HYPERTENSION
     Dosage: UNK
     Dates: start: 201603
  6. WARFARIN [Concomitant]
     Active Substance: WARFARIN
     Indication: EMBOLISM VENOUS
     Dosage: UNK
     Dates: start: 201603, end: 20160603

REACTIONS (6)
  - Epistaxis [Recovered/Resolved]
  - Blood pressure increased [Recovered/Resolved]
  - Oedema peripheral [Recovered/Resolved]
  - Treatment noncompliance [Recovered/Resolved]
  - Heart rate increased [Recovered/Resolved]
  - Rash pruritic [Recovered/Resolved]

NARRATIVE: CASE EVENT DATE: 201605
